FAERS Safety Report 20456015 (Version 1)
Quarter: 2022Q1

REPORT INFORMATION
  Report Type: Spontaneous
  Country: US (occurrence: None)
  Receive Date: 20220210
  Receipt Date: 20220210
  Transmission Date: 20220423
  Serious: No
  Sender: FDA-Public Use
  Company Number: None

PATIENT
  Age: 61 Year
  Sex: Female
  Weight: 151 kg

DRUGS (1)
  1. TOPIRAMATE [Suspect]
     Active Substance: TOPIRAMATE
     Indication: Migraine
     Dosage: FREQUENCY : TWICE A DAY;?
     Route: 048
     Dates: start: 20191227, end: 20210601

REACTIONS (2)
  - Cognitive disorder [None]
  - Confusional state [None]

NARRATIVE: CASE EVENT DATE: 20211007
